FAERS Safety Report 5838417-0 (Version None)
Quarter: 2008Q3

REPORT INFORMATION
  Report Type: 
  Country: None (occurrence: None)
  Receive Date: 20080808
  Receipt Date: 20080730
  Transmission Date: 20090109
  Serious: Yes (Other)
  Sender: FDA-Public Use
  Company Number: US-JNJFOC-20080800105

PATIENT
  Sex: Female

DRUGS (4)
  1. TYLENOL (CAPLET) [Suspect]
  2. TYLENOL (CAPLET) [Suspect]
     Indication: ARTHRALGIA
     Dosage: 325 MG AT 2200 ON 29-JUL-2008, UNKNOWN DOSE AT 1130 ON 30-JUL-2008
  3. ACETAMINOPHEN [Suspect]
     Indication: ARTHRALGIA
  4. COUMADIN [Interacting]
     Indication: ANTICOAGULANT THERAPY

REACTIONS (3)
  - BLOOD URINE PRESENT [None]
  - DRUG INTERACTION [None]
  - WRONG TECHNIQUE IN DRUG USAGE PROCESS [None]
